FAERS Safety Report 4775204-9 (Version None)
Quarter: 2005Q3

REPORT INFORMATION
  Report Type: 
  Country: None (occurrence: None)
  Receive Date: 20050921
  Receipt Date: 20041210
  Transmission Date: 20060218
  Serious: Yes (Other)
  Sender: FDA-Public Use
  Company Number: CA-MERCK-0412CAN00070

PATIENT
  Age: 59 Year
  Sex: Male

DRUGS (5)
  1. VIOXX [Suspect]
     Indication: NECK PAIN
     Route: 048
     Dates: start: 19990101, end: 20040930
  2. RAMIPRIL [Concomitant]
     Route: 065
  3. CLOPIDOGREL BISULFATE [Concomitant]
     Route: 065
  4. ESOMEPRAZOLE MAGNESIUM [Concomitant]
     Route: 065
  5. VIOXX [Suspect]
     Indication: HEADACHE
     Route: 048
     Dates: start: 19990101, end: 20040930

REACTIONS (5)
  - CHEST PAIN [None]
  - DYSPNOEA [None]
  - MYOCARDIAL INFARCTION [None]
  - SYNCOPE [None]
  - VISION BLURRED [None]
